FAERS Safety Report 21692397 (Version 1)
Quarter: 2022Q4

REPORT INFORMATION
  Report Type: Report from Study
  Country: US (occurrence: US)
  Receive Date: 20221207
  Receipt Date: 20221207
  Transmission Date: 20230113
  Serious: Yes (Other)
  Sender: FDA-Public Use
  Company Number: US-ABBVIE-4225803

PATIENT
  Sex: Female

DRUGS (1)
  1. HUMIRA [Suspect]
     Active Substance: ADALIMUMAB
     Indication: Product used for unknown indication
     Dosage: DOSE STRENGTH 40 MG, CITRATE FREE
     Route: 058

REACTIONS (4)
  - Subcutaneous abscess [Not Recovered/Not Resolved]
  - Cyst [Not Recovered/Not Resolved]
  - Back pain [Not Recovered/Not Resolved]
  - Abscess [Not Recovered/Not Resolved]
